FAERS Safety Report 6120907-7 (Version None)
Quarter: 2009Q1

REPORT INFORMATION
  Report Type: 
  Country: None (occurrence: None)
  Receive Date: 20090312
  Receipt Date: 20090302
  Transmission Date: 20090719
  Serious: Yes (Disabling)
  Sender: FDA-Public Use
  Company Number: OSCN-NO-0903S-0131

PATIENT
  Age: 61 Year
  Sex: Male

DRUGS (1)
  1. OMNISCAN [Suspect]
     Indication: PROCTALGIA
     Dosage: 15 ML, SINGLE DOSE, I.V.
     Route: 042
     Dates: start: 20060201, end: 20060201

REACTIONS (2)
  - OEDEMA PERIPHERAL [None]
  - PAIN IN EXTREMITY [None]
